FAERS Safety Report 5978978-4 (Version None)
Quarter: 2008Q4

REPORT INFORMATION
  Report Type: 
  Country: None (occurrence: None)
  Receive Date: 20081204
  Receipt Date: 20081124
  Transmission Date: 20090506
  Serious: Yes (Hospitalization, Other)
  Sender: FDA-Public Use
  Company Number: GB-JNJFOC-20081105991

PATIENT
  Age: 43 Year
  Sex: Female

DRUGS (8)
  1. ACETAMINOPHEN [Suspect]
     Route: 048
  2. ACETAMINOPHEN [Suspect]
     Indication: PAIN
     Route: 048
  3. FLUOXETINE [Suspect]
     Route: 048
  4. FLUOXETINE [Suspect]
     Indication: DEPRESSION
     Route: 048
  5. COPAXONE [Suspect]
     Indication: MULTIPLE SCLEROSIS
     Route: 058
  6. GABAPENTIN [Suspect]
     Indication: PAIN
     Route: 048
  7. WINE [Suspect]
     Indication: DRUG USE FOR UNKNOWN INDICATION
     Dosage: A BOTTLE
  8. OXYBUTYNIN CHLORIDE [Concomitant]
     Route: 048

REACTIONS (2)
  - MULTIPLE DRUG OVERDOSE INTENTIONAL [None]
  - SUICIDE ATTEMPT [None]
